FAERS Safety Report 8078277-3 (Version None)
Quarter: 2012Q1

REPORT INFORMATION
  Report Type: 
  Country: None (occurrence: None)
  Receive Date: 20120123
  Receipt Date: 20120109
  Transmission Date: 20120608
  Serious: Yes (Other)
  Sender: FDA-Public Use
  Company Number: 2012MA000440

PATIENT
  Sex: Male

DRUGS (23)
  1. DIGOXIN [Suspect]
     Indication: PRODUCT USED FOR UNKNOWN INDICATION
     Dosage: 0.25 MG;QD;PO
     Route: 048
     Dates: start: 20090101
  2. LASIX [Concomitant]
  3. METOPROLOL [Concomitant]
  4. METOLAZONE [Concomitant]
  5. PREDNISONE TAB [Concomitant]
  6. CALCIUM [Concomitant]
  7. ARTIFICIAL TEARS [Concomitant]
  8. TARTRATE [Concomitant]
  9. COUMADIN [Concomitant]
  10. SINEMET [Concomitant]
  11. CLARITIN [Concomitant]
  12. M.V.I. [Concomitant]
  13. PROCRIT [Concomitant]
  14. METAMUCIL-2 [Concomitant]
  15. FERROUS SULFATE TAB [Concomitant]
  16. COUMADIN [Concomitant]
  17. APAP TAB [Concomitant]
  18. MIRAPEX [Concomitant]
  19. MILK OF MAGNESIA TAB [Concomitant]
  20. ALKERAN [Concomitant]
  21. THALOMID [Concomitant]
  22. POTASSIUM CHLORIDE [Concomitant]
  23. MIRALAX [Concomitant]

REACTIONS (6)
  - PARKINSON'S DISEASE [None]
  - ATRIAL FIBRILLATION [None]
  - ANAEMIA [None]
  - HYPERTENSION [None]
  - MULTIPLE MYELOMA [None]
  - CONSTIPATION [None]
